FAERS Safety Report 4864670-6 (Version None)
Quarter: 2005Q4

REPORT INFORMATION
  Report Type: 
  Country: None (occurrence: None)
  Receive Date: 20051222
  Receipt Date: 20051206
  Transmission Date: 20060501
  Serious: Yes (Hospitalization)
  Sender: FDA-Public Use
  Company Number: US-MERCK-0512USA00742

PATIENT
  Age: 65 Year
  Sex: Male

DRUGS (5)
  1. VIOXX [Suspect]
     Indication: PAIN MANAGEMENT
     Route: 048
     Dates: start: 20000601, end: 20010101
  2. LIPITOR [Concomitant]
     Route: 048
  3. PREVACID [Concomitant]
     Route: 048
  4. VALIUM [Concomitant]
     Route: 048
  5. ZOCOR [Concomitant]
     Route: 048

REACTIONS (1)
  - AORTIC ANEURYSM [None]
